FAERS Safety Report 24375423 (Version 1)
Quarter: 2024Q3

REPORT INFORMATION
  Report Type: Spontaneous
  Country: BR (occurrence: BR)
  Receive Date: 20240928
  Receipt Date: 20240928
  Transmission Date: 20241016
  Serious: Yes (Other)
  Sender: ACCORD
  Company Number: BR-Accord-447927

PATIENT
  Age: 47 Year
  Sex: Male

DRUGS (2)
  1. CLOPIDOGREL [Suspect]
     Active Substance: CLOPIDOGREL BISULFATE
     Indication: Product used for unknown indication
     Dosage: STRENGTH: 75 MG
     Route: 048
  2. ATORVASTATIN [Concomitant]
     Active Substance: ATORVASTATIN

REACTIONS (2)
  - Myocardial infarction [Recovered/Resolved]
  - Drug ineffective [Unknown]

NARRATIVE: CASE EVENT DATE: 20240101
